FAERS Safety Report 15183726 (Version 2)
Quarter: 2018Q3

REPORT INFORMATION
  Report Type: Spontaneous
  Country: US (occurrence: US)
  Receive Date: 20180723
  Receipt Date: 20180906
  Transmission Date: 20181010
  Serious: Yes (Hospitalization)
  Sender: FDA-Public Use
  Company Number: US-ACTELION-A-NJ2018-175739

PATIENT
  Age: 44 Year
  Sex: Female

DRUGS (13)
  1. KLOR?CON [Concomitant]
     Active Substance: POTASSIUM CHLORIDE
     Dosage: 10 MEQ, QD
     Route: 048
  2. TYLENOL [Concomitant]
     Active Substance: ACETAMINOPHEN
     Dosage: 325 MG, Q4HRS, PRN
     Route: 048
  3. OPSUMIT [Suspect]
     Active Substance: MACITENTAN
     Indication: PULMONARY HYPERTENSION
     Dosage: 10 MG, QD
     Route: 048
     Dates: start: 20180706
  4. REVATIO [Concomitant]
     Active Substance: SILDENAFIL CITRATE
     Dosage: 20 MG, TID
     Route: 048
  5. FOLATE [Concomitant]
     Active Substance: FOLATE SODIUM
     Dosage: 1 MG, QD
     Route: 048
  6. PREVACID [Concomitant]
     Active Substance: LANSOPRAZOLE
     Dosage: 30 MG, Q12HRS
     Route: 048
  7. VITAMIN D [Concomitant]
     Active Substance: CHOLECALCIFEROL
     Dosage: 1000 U, QOD
     Route: 048
  8. MAG?OX [Concomitant]
     Active Substance: MAGNESIUM OXIDE
     Dosage: 400 MG, BID
     Route: 048
  9. EPIPEN [Concomitant]
     Active Substance: EPINEPHRINE
     Indication: ANAPHYLACTIC REACTION
     Dosage: UNK, PRN
  10. LASIX [Concomitant]
     Active Substance: FUROSEMIDE
     Dosage: 20 MG, QD
     Route: 048
  11. VITAMIN B1 [Concomitant]
     Active Substance: THIAMINE HYDROCHLORIDE
     Dosage: 100 MG, QD
     Route: 048
  12. CETIRIZINE [Concomitant]
     Active Substance: CETIRIZINE HYDROCHLORIDE
     Dosage: 10 MG, PRN
     Route: 048
  13. PERCOCET [Concomitant]
     Active Substance: ACETAMINOPHEN\OXYCODONE HYDROCHLORIDE
     Dosage: 5MG/325MG, PRN
     Route: 048

REACTIONS (42)
  - Urticaria [Recovering/Resolving]
  - Dilatation ventricular [Recovering/Resolving]
  - Anaemia [Not Recovered/Not Resolved]
  - Right ventricular failure [Recovering/Resolving]
  - Salivary hypersecretion [Recovering/Resolving]
  - Hypovolaemic shock [Recovering/Resolving]
  - Cachexia [Recovering/Resolving]
  - Blood potassium decreased [Recovered/Resolved]
  - Blood phosphorus decreased [Recovered/Resolved]
  - Weight increased [Recovering/Resolving]
  - Palpitations [Recovering/Resolving]
  - Cardiorenal syndrome [Recovering/Resolving]
  - Oedema peripheral [Recovering/Resolving]
  - Chest pain [Recovering/Resolving]
  - Blood pressure systolic decreased [Recovering/Resolving]
  - Tricuspid valve incompetence [Recovering/Resolving]
  - Abdominal distension [Recovering/Resolving]
  - Aspartate aminotransferase increased [Not Recovered/Not Resolved]
  - Chest discomfort [Recovering/Resolving]
  - Dyspnoea [Recovering/Resolving]
  - Pyrexia [Recovering/Resolving]
  - Hypotension [Recovering/Resolving]
  - Sepsis [Recovered/Resolved]
  - Cardiogenic shock [Recovering/Resolving]
  - Pulmonary arterial pressure abnormal [Recovering/Resolving]
  - Transfusion [Recovering/Resolving]
  - Malnutrition [Recovering/Resolving]
  - Blood bilirubin abnormal [Not Recovered/Not Resolved]
  - Cough [Recovering/Resolving]
  - Pneumonia [Recovered/Resolved]
  - Ventricular dysfunction [Recovering/Resolving]
  - Haemoglobin decreased [Not Recovered/Not Resolved]
  - Oral candidiasis [Recovered/Resolved]
  - Lactose intolerance [Recovering/Resolving]
  - White blood cell count increased [Recovering/Resolving]
  - Oxygen saturation decreased [Recovering/Resolving]
  - Septic shock [Recovering/Resolving]
  - Fluid overload [Recovering/Resolving]
  - Pericardial effusion [Recovering/Resolving]
  - Refeeding syndrome [Recovering/Resolving]
  - Acute kidney injury [Recovering/Resolving]
  - Dysphagia [Recovering/Resolving]

NARRATIVE: CASE EVENT DATE: 201807
